FAERS Safety Report 8030153-8 (Version None)
Quarter: 2011Q4

REPORT INFORMATION
  Report Type: 
  Country: None (occurrence: None)
  Receive Date: 20111130
  Receipt Date: 20110629
  Transmission Date: 20120403
  Serious: Yes (Hospitalization, Other)
  Sender: FDA-Public Use
  Company Number: US201002003768

PATIENT
  Age: 43 Year
  Sex: Male
  Weight: 149.7 kg

DRUGS (4)
  1. DEPAKOTE [Concomitant]
  2. BYETTA [Suspect]
     Dates: start: 20070101, end: 20080101
  3. EXENATIDE UNK STRENGTH PEN, DISPOSABLE DEVCIE (EXENATIDE PEN (UNKNOWN [Concomitant]
  4. METFORMIN HCL [Concomitant]

REACTIONS (2)
  - PANCREATITIS [None]
  - HYPOCALCAEMIA [None]
